FAERS Safety Report 23310377 (Version 1)
Quarter: 2023Q4

REPORT INFORMATION
  Report Type: Spontaneous
  Country: US (occurrence: US)
  Receive Date: 20231218
  Receipt Date: 20231218
  Transmission Date: 20240110
  Serious: No
  Sender: FDA-Public Use
  Company Number: US-MYLANLABS-2023M1121244

PATIENT
  Sex: Female

DRUGS (1)
  1. ESTRADIOL [Suspect]
     Active Substance: ESTRADIOL
     Indication: Ill-defined disorder
     Dosage: 1 GRAM, QD
     Route: 067

REACTIONS (2)
  - Incorrect dose administered by device [Unknown]
  - Product quality issue [Unknown]
